FAERS Safety Report 14389572 (Version 2)
Quarter: 2018Q4

REPORT INFORMATION
  Report Type: Spontaneous
  Country: US (occurrence: US)
  Receive Date: 20180115
  Receipt Date: 20181217
  Transmission Date: 20190204
  Serious: Yes (Other)
  Sender: FDA-Public Use
  Company Number: US-SA-2017SA243709

PATIENT
  Age: 57 Year
  Sex: Female

DRUGS (7)
  1. POTASSIUM [Concomitant]
     Active Substance: POTASSIUM
     Dosage: UNK UNK,UNK
     Route: 065
     Dates: start: 2011
  2. CARBOPLATIN. [Concomitant]
     Active Substance: CARBOPLATIN
  3. FUROSEMIDE. [Concomitant]
     Active Substance: FUROSEMIDE
     Dosage: UNK UNK,UNK
     Route: 065
     Dates: start: 2011
  4. NEOSAR [Concomitant]
     Active Substance: CYCLOPHOSPHAMIDE
     Dosage: UNK UNK, UNK
     Route: 065
  5. TAXOTERE [Suspect]
     Active Substance: DOCETAXEL
     Indication: BREAST CANCER FEMALE
     Dosage: 216 MG, Q3W
     Route: 042
     Dates: start: 201008, end: 201008
  6. TAXOTERE [Suspect]
     Active Substance: DOCETAXEL
     Dosage: 216 MG, Q3W
     Route: 042
     Dates: start: 201012, end: 201012
  7. ATENOLOL. [Concomitant]
     Active Substance: ATENOLOL
     Dosage: UNK UNK,UNK
     Route: 065
     Dates: start: 2010

REACTIONS (3)
  - Emotional distress [Unknown]
  - Alopecia [Not Recovered/Not Resolved]
  - Anxiety [Unknown]

NARRATIVE: CASE EVENT DATE: 201106
